FAERS Safety Report 8543417-6 (Version None)
Quarter: 2012Q3

REPORT INFORMATION
  Report Type: 
  Country: None (occurrence: None)
  Receive Date: 20120727
  Receipt Date: 20120725
  Transmission Date: 20120928
  Serious: Yes (Other)
  Sender: FDA-Public Use
  Company Number: CA-PFIZER INC-2012181247

PATIENT
  Sex: Male

DRUGS (3)
  1. CELEBREX [Concomitant]
     Dosage: UNK
  2. SYNTHROID [Concomitant]
     Indication: THYROID DISORDER
     Dosage: UNK
  3. VARENICLINE TARTRATE [Suspect]
     Dosage: UNK
     Dates: start: 20120401, end: 20120701

REACTIONS (3)
  - ABASIA [None]
  - OEDEMA PERIPHERAL [None]
  - GOUT [None]
